FAERS Safety Report 5010307-5 (Version None)
Quarter: 2006Q2

REPORT INFORMATION
  Report Type: 
  Country: None (occurrence: None)
  Receive Date: 20060516
  Receipt Date: 20060502
  Transmission Date: 20061013
  Serious: Yes (Hospitalization)
  Sender: FDA-Public Use
  Company Number: WSDF_00543

PATIENT
  Age: 5 Year
  Sex: Female
  Weight: 29.0302 kg

DRUGS (1)
  1. WINRHO SDF [Suspect]
     Indication: IDIOPATHIC THROMBOCYTOPENIC PURPURA
     Dates: start: 20050805, end: 20050805

REACTIONS (12)
  - CONVULSION [None]
  - EVAN'S SYNDROME [None]
  - FEBRILE CONVULSION [None]
  - NAUSEA [None]
  - NEUTROPHIL COUNT DECREASED [None]
  - PLATELET COUNT DECREASED [None]
  - PRURITUS [None]
  - PYREXIA [None]
  - TACHYCARDIA [None]
  - TREMOR [None]
  - UNEVALUABLE EVENT [None]
  - VOMITING [None]
